FAERS Safety Report 9830427 (Version 3)
Quarter: 2014Q1

REPORT INFORMATION
  Report Type: Spontaneous
  Country: JP (occurrence: JP)
  Receive Date: 20140120
  Receipt Date: 20140210
  Transmission Date: 20141002
  Serious: Yes (Death)
  Sender: FDA-Public Use
  Company Number: JP-JNJFOC-20140105254

PATIENT
  Age: 79 Year
  Sex: Male
  Weight: 68 kg

DRUGS (10)
  1. XARELTO [Suspect]
     Indication: CEREBROVASCULAR ACCIDENT PROPHYLAXIS
     Route: 048
     Dates: start: 20130513, end: 20131007
  2. XARELTO [Suspect]
     Indication: ATRIAL FIBRILLATION
     Route: 048
     Dates: start: 20130513, end: 20131007
  3. BETANIS [Concomitant]
     Indication: HYPERTONIC BLADDER
     Route: 048
     Dates: start: 20131001, end: 20131007
  4. AMLODIPINE [Concomitant]
     Indication: HYPERTENSION
     Route: 048
     Dates: start: 20081225, end: 20131007
  5. NOVORAPID [Concomitant]
     Indication: DIABETES MELLITUS
     Route: 058
     Dates: start: 200108, end: 201310
  6. KETOBUN A [Concomitant]
     Indication: HYPERURICAEMIA
     Route: 048
     Dates: start: 20080711, end: 20131001
  7. FUROSEMIDE [Concomitant]
     Route: 048
     Dates: start: 20090427, end: 20131007
  8. DOXAZOSIN MESILATE [Concomitant]
     Indication: HYPERTENSION
     Route: 048
     Dates: start: 20120212, end: 20131007
  9. EPINASTINE HYDROCHLORIDE [Concomitant]
     Indication: RHINITIS ALLERGIC
     Route: 048
     Dates: start: 20120925, end: 20131007
  10. RANITIDINE HYDROCHLORIDE [Concomitant]
     Indication: GASTRITIS
     Route: 065
     Dates: start: 20120720, end: 20131007

REACTIONS (1)
  - Interstitial lung disease [Fatal]
